FAERS Safety Report 6831617-2 (Version None)
Quarter: 2010Q3

REPORT INFORMATION
  Report Type: 
  Country: None (occurrence: None)
  Receive Date: 20100707
  Receipt Date: 20100624
  Transmission Date: 20110219
  Serious: Yes (Other)
  Sender: FDA-Public Use
  Company Number: 7009286

PATIENT
  Age: 40 Year
  Sex: Female
  Weight: 47 kg

DRUGS (7)
  1. REBIF [Suspect]
     Indication: MULTIPLE SCLEROSIS
     Dosage: 44 MCG, 3 IN 1WK SUBCUTANEOUS, 44 MCG, 3 IN 1WK SUBCUTANEOUS
     Route: 058
     Dates: start: 20090828, end: 20100520
  2. REBIF [Suspect]
     Indication: MULTIPLE SCLEROSIS
     Dosage: 44 MCG, 3 IN 1WK SUBCUTANEOUS, 44 MCG, 3 IN 1WK SUBCUTANEOUS
     Route: 058
     Dates: start: 20100604
  3. BACLOFEN [Concomitant]
  4. GABAPENTIN [Concomitant]
  5. POTASSIUM CHLORIDE [Concomitant]
  6. LORAZEPAM [Concomitant]
  7. AMLODIPINE [Concomitant]

REACTIONS (3)
  - ABORTION SPONTANEOUS [None]
  - DRUG EXPOSURE DURING PREGNANCY [None]
  - PREGNANCY [None]
